FAERS Safety Report 17275791 (Version 2)
Quarter: 2020Q1

REPORT INFORMATION
  Report Type: Spontaneous
  Country: UA (occurrence: UA)
  Receive Date: 20200116
  Receipt Date: 20200124
  Transmission Date: 20200409
  Serious: Yes (Other)
  Sender: FDA-Public Use
  Company Number: UA-SA-2020SA008766

PATIENT
  Sex: Female

DRUGS (1)
  1. CEREZYME [Suspect]
     Active Substance: IMIGLUCERASE
     Indication: GAUCHER^S DISEASE TYPE I
     Dosage: UNK UNK, UNK
     Route: 042
     Dates: start: 20200110

REACTIONS (6)
  - Thrombocytopenia [Unknown]
  - Chest pain [Unknown]
  - Abdominal pain upper [Unknown]
  - Hypertension [Unknown]
  - Feeling cold [Unknown]
  - Tachycardia [Unknown]

NARRATIVE: CASE EVENT DATE: 20200110
